FAERS Safety Report 6532087-4 (Version None)
Quarter: 2010Q1

REPORT INFORMATION
  Report Type: 
  Country: None (occurrence: None)
  Receive Date: 20100108
  Receipt Date: 20100105
  Transmission Date: 20100710
  Serious: Yes (Life-Threatening)
  Sender: FDA-Public Use
  Company Number: DE-SANOFI-AVENTIS-2010SA000526

PATIENT
  Age: 49 Year
  Sex: Female
  Weight: 78 kg

DRUGS (2)
  1. ARAVA [Suspect]
     Route: 048
     Dates: start: 20090101, end: 20090101
  2. ARAVA [Suspect]
     Route: 048
     Dates: start: 20090101, end: 20091127

REACTIONS (5)
  - AGRANULOCYTOSIS [None]
  - HEPATOTOXICITY [None]
  - ORAL CANDIDIASIS [None]
  - SEPSIS [None]
  - TRACHEITIS [None]
